FAERS Safety Report 18954682 (Version 2)
Quarter: 2021Q1

REPORT INFORMATION
  Report Type: Spontaneous
  Country: KR (occurrence: KR)
  Receive Date: 20210301
  Receipt Date: 20210304
  Transmission Date: 20210420
  Serious: Yes (Death, Other)
  Sender: FDA-Public Use
  Company Number: KR-GILEAD-2021-0518637

PATIENT
  Sex: Female
  Weight: 73 kg

DRUGS (44)
  1. FURIX [CEFUROXIME] [Concomitant]
     Active Substance: CEFUROXIME
  2. TRIAXONE [Concomitant]
  3. SUCCINYLCHOLINE [SUXAMETHONIUM] [Concomitant]
     Active Substance: SUCCINYLCHOLINE
  4. LASIX [Concomitant]
     Active Substance: FUROSEMIDE
  5. NORPINE [Concomitant]
  6. VASOPRESSIN. [Concomitant]
     Active Substance: VASOPRESSIN
  7. DICHLOZID [Concomitant]
  8. TABAXIN [Concomitant]
     Active Substance: PIPERACILLIN SODIUM\TAZOBACTAM SODIUM
  9. SODIUM BICARBONATE. [Concomitant]
     Active Substance: SODIUM BICARBONATE
  10. NOLTEC [Concomitant]
  11. HUMALOG [Concomitant]
     Active Substance: INSULIN LISPRO
  12. ALBUMIN [Concomitant]
     Active Substance: ALBUMIN HUMAN
  13. FENTANYL. [Concomitant]
     Active Substance: FENTANYL
  14. ATORVA [Concomitant]
     Active Substance: ATORVASTATIN
  15. MOTILITONE [Concomitant]
     Active Substance: HERBALS
  16. ALDACTONE PLUS [Concomitant]
  17. TAPOCIN [Concomitant]
  18. HEPARIN [Concomitant]
     Active Substance: HEPARIN SODIUM
  19. NEXIUM I.V. [Concomitant]
     Active Substance: ESOMEPRAZOLE SODIUM
  20. BOTROPASE [Concomitant]
     Active Substance: BATROXOBIN
  21. MIDACUM [Concomitant]
  22. VEKLURY [Suspect]
     Active Substance: REMDESIVIR
     Dosage: 100 MG, QD
     Route: 042
     Dates: start: 20210108, end: 20210108
  23. AMARYLL [Concomitant]
  24. OLMETEC [Concomitant]
     Active Substance: OLMESARTAN MEDOXOMIL
  25. MAGMIL [Concomitant]
     Active Substance: MAGNESIUM HYDROXIDE
  26. NOVORAPID [Concomitant]
     Active Substance: INSULIN ASPART
  27. TAMIPOOL [Concomitant]
     Active Substance: VITAMINS
  28. CALCIUM CHLORIDE. [Concomitant]
     Active Substance: CALCIUM CHLORIDE
  29. CNOXANE [Concomitant]
  30. ULTIAN [Concomitant]
  31. VEKLURY [Suspect]
     Active Substance: REMDESIVIR
     Indication: COVID-19
     Dosage: 200 MG, ONCE
     Route: 042
     Dates: start: 20210104, end: 20210104
  32. MAXIBUPEN [Concomitant]
  33. DUPHALAC [Concomitant]
     Active Substance: LACTULOSE
  34. DEXAMETHASONE. [Concomitant]
     Active Substance: DEXAMETHASONE
  35. MAXIPIME [Concomitant]
     Active Substance: CEFEPIME HYDROCHLORIDE
  36. ETOMIDATE?LIPURO [Concomitant]
     Active Substance: ETOMIDATE
  37. WINUF PERI [Concomitant]
     Active Substance: AMINO ACIDS\DEXTROSE\ELECTROLYTES NOS\SOYBEAN OIL\VITAMINS
  38. TRAJENTA [Concomitant]
     Active Substance: LINAGLIPTIN
  39. NORVASC [Concomitant]
     Active Substance: AMLODIPINE BESYLATE
  40. PHOSTEN [Concomitant]
  41. PRECEDEX [Concomitant]
     Active Substance: DEXMEDETOMIDINE HYDROCHLORIDE
  42. TOUJEO [Concomitant]
     Active Substance: INSULIN GLARGINE
  43. PENIRAMIN [Concomitant]
  44. ATRA [ATRACURIUM BESILATE] [Concomitant]

REACTIONS (1)
  - Acute respiratory distress syndrome [Fatal]
